FAERS Safety Report 9385984 (Version 1)
Quarter: 2013Q3

REPORT INFORMATION
  Report Type: Spontaneous
  Country: US (occurrence: US)
  Receive Date: 20130705
  Receipt Date: 20130705
  Transmission Date: 20140515
  Serious: Yes (Other)
  Sender: FDA-Public Use
  Company Number: US-BAXTER-2013BAX025327

PATIENT
  Age: 74 Year
  Sex: Female

DRUGS (3)
  1. CYCLOPHOSPHAMIDE FOR INJECTION, USP [Suspect]
     Indication: ULCERATIVE KERATITIS
     Route: 042
  2. SOLUMEDROL [Suspect]
     Indication: ULCERATIVE KERATITIS
  3. METHOTREXATE [Suspect]
     Indication: ULCERATIVE KERATITIS
     Route: 048

REACTIONS (1)
  - Breast cancer [Recovered/Resolved]
